FAERS Safety Report 18447115 (Version 2)
Quarter: 2020Q4

REPORT INFORMATION
  Report Type: Spontaneous
  Country: US (occurrence: US)
  Receive Date: 20201030
  Receipt Date: 20201118
  Transmission Date: 20210114
  Serious: Yes (Other)
  Sender: FDA-Public Use
  Company Number: US-ALLERGAN-2041251US

PATIENT
  Sex: Female

DRUGS (1)
  1. REFRESH TEARS [Suspect]
     Active Substance: CARBOXYMETHYLCELLULOSE SODIUM
     Indication: DRY EYE
     Dosage: UNK
     Route: 047
     Dates: start: 202008, end: 202009

REACTIONS (9)
  - Suspected transmission of an infectious agent via product [Unknown]
  - Eye inflammation [Recovering/Resolving]
  - Product contamination microbial [Unknown]
  - Visual acuity reduced [Unknown]
  - Eye infection [Unknown]
  - Wrong technique in product usage process [Unknown]
  - Poor quality product administered [Unknown]
  - Eye irritation [Unknown]
  - Uveitis [Unknown]
